FAERS Safety Report 17510707 (Version 2)
Quarter: 2020Q1

REPORT INFORMATION
  Report Type: Spontaneous
  Country: CN (occurrence: CN)
  Receive Date: 20200306
  Receipt Date: 20200310
  Transmission Date: 20200409
  Serious: Yes (Hospitalization, Other)
  Sender: FDA-Public Use
  Company Number: CN-UCBSA-2020008968

PATIENT
  Age: 11 Month
  Sex: Male
  Weight: 8.5 kg

DRUGS (3)
  1. KEPPRA [Suspect]
     Active Substance: LEVETIRACETAM
     Indication: EPILEPSY
     Dosage: 0.5 MILLILITER, 2X/DAY (BID)
     Route: 041
     Dates: start: 201903, end: 2019
  2. TOPIRAMATE. [Suspect]
     Active Substance: TOPIRAMATE
     Indication: EPILEPSY
     Dosage: 18.75 MILLIGRAM, 2X/DAY (BID)
     Route: 048
     Dates: start: 20181111, end: 20190729
  3. KEPPRA [Suspect]
     Active Substance: LEVETIRACETAM
     Dosage: 1.0 MILLILITER, 2X/DAY (BID)
     Dates: start: 2019, end: 20190729

REACTIONS (5)
  - Anhidrosis [Recovered/Resolved]
  - Seizure [Recovered/Resolved]
  - Muscular weakness [Recovered/Resolved]
  - Intentional product misuse [Unknown]
  - Decreased appetite [Recovered/Resolved]

NARRATIVE: CASE EVENT DATE: 20190510
